FAERS Safety Report 5404707-9 (Version None)
Quarter: 2007Q3

REPORT INFORMATION
  Report Type: 
  Country: None (occurrence: None)
  Receive Date: 20070801
  Receipt Date: 20070619
  Transmission Date: 20080115
  Serious: Yes (Other)
  Sender: FDA-Public Use
  Company Number: 430018M07DEU

PATIENT
  Sex: Female

DRUGS (1)
  1. MITOXANTRONE HCL [Suspect]
     Indication: SECONDARY PROGRESSIVE MULTIPLE SCLEROSIS
     Dosage: INTRAVENOUS (NOT OTHERWISE SPECIFIED)
     Route: 042
     Dates: end: 20040101

REACTIONS (3)
  - CARDIAC SEPTAL DEFECT [None]
  - PULMONARY HYPERTENSION [None]
  - TRICUSPID VALVE DISEASE [None]
